FAERS Safety Report 16561524 (Version 1)
Quarter: 2019Q3

REPORT INFORMATION
  Report Type: Spontaneous
  Country: US (occurrence: US)
  Receive Date: 20190711
  Receipt Date: 20190711
  Transmission Date: 20191004
  Serious: Yes (Other)
  Sender: FDA-Public Use
  Company Number: US-PFIZER INC-2019293491

PATIENT
  Age: 89 Year
  Sex: Female
  Weight: 58.5 kg

DRUGS (5)
  1. CELEBREX [Suspect]
     Active Substance: CELECOXIB
     Indication: OSTEOPOROSIS
  2. CELEBREX [Suspect]
     Active Substance: CELECOXIB
     Indication: OSTEOARTHRITIS
     Dosage: 1X/DAY
     Route: 048
  3. XANAX [Concomitant]
     Active Substance: ALPRAZOLAM
     Indication: SLEEP DISORDER
     Dosage: TAKEN NIGHTLY AS NEEDED, NOT EVERY NIGHT
     Dates: start: 2017
  4. PAXIL [PIROXICAM] [Concomitant]
     Active Substance: PIROXICAM
     Indication: DEPRESSION
     Dosage: MAYBE 10 MG, AS NEEDED
     Dates: start: 2017
  5. AMBIEN [Concomitant]
     Active Substance: ZOLPIDEM TARTRATE
     Indication: SLEEP DISORDER
     Dosage: TAKEN NIGHTLY AS NEEDED, NOT EVERY NIGHT
     Dates: start: 2017

REACTIONS (11)
  - Pain [Not Recovered/Not Resolved]
  - Cataract [Unknown]
  - Gastric disorder [Unknown]
  - Hypoacusis [Not Recovered/Not Resolved]
  - Drug ineffective [Unknown]
  - Back disorder [Not Recovered/Not Resolved]
  - Spinal stenosis [Not Recovered/Not Resolved]
  - Macular degeneration [Unknown]
  - Visual impairment [Not Recovered/Not Resolved]
  - Rosacea [Not Recovered/Not Resolved]
  - Vision blurred [Not Recovered/Not Resolved]

NARRATIVE: CASE EVENT DATE: 2019
